FAERS Safety Report 6303591-9 (Version None)
Quarter: 2009Q3

REPORT INFORMATION
  Report Type: 
  Country: None (occurrence: None)
  Receive Date: 20090810
  Receipt Date: 20090806
  Transmission Date: 20100115
  Serious: Yes (Other)
  Sender: FDA-Public Use
  Company Number: US-GENENTECH-285558

PATIENT
  Sex: Female
  Weight: 81.633 kg

DRUGS (1)
  1. AVASTIN [Suspect]
     Indication: BREAST CANCER
     Dosage: UNK, 1/WEEK
     Route: 042
     Dates: start: 20090301

REACTIONS (3)
  - DYSPHONIA [None]
  - DYSPNOEA [None]
  - OESOPHAGEAL DISCOMFORT [None]
